FAERS Safety Report 7282339-8 (Version None)
Quarter: 2011Q1

REPORT INFORMATION
  Report Type: 
  Country: None (occurrence: None)
  Receive Date: 20110209
  Receipt Date: 20110201
  Transmission Date: 20110831
  Serious: Yes (Death, Hospitalization, Other)
  Sender: FDA-Public Use
  Company Number: US-TEVA-265566USA

PATIENT
  Age: 59 Year
  Sex: Female

DRUGS (9)
  1. CYCLOPHOSPHAMIDE [Suspect]
     Indication: MANTLE CELL LYMPHOMA STAGE IV
  2. CYTARABINE HYDROCHLORIDE 50 MG/ML; 100 MG/ML [Suspect]
     Indication: MANTLE CELL LYMPHOMA STAGE IV
     Dosage: BID FOR 8 DOSES ON DAYS -5 TO-2
     Route: 042
  3. MELPHALAN [Suspect]
     Indication: MANTLE CELL LYMPHOMA STAGE IV
     Dosage: DAY -1
     Route: 042
  4. ETOPOSIDE [Suspect]
     Indication: MANTLE CELL LYMPHOMA STAGE IV
     Dosage: BID FOR 8 DOSES ON DAYS -5 TO -2
     Route: 042
  5. VINCRISTINE [Suspect]
     Indication: MANTLE CELL LYMPHOMA STAGE IV
  6. RITUXIMAB [Suspect]
     Indication: MANTLE CELL LYMPHOMA STAGE IV
  7. DOXORUBICIN [Suspect]
     Indication: MANTLE CELL LYMPHOMA STAGE IV
  8. CARMUSTINE [Suspect]
     Indication: MANTLE CELL LYMPHOMA STAGE IV
     Dosage: DAY -6
     Route: 042
  9. DEXAMETHASONE [Suspect]
     Indication: MANTLE CELL LYMPHOMA STAGE IV

REACTIONS (1)
  - PNEUMOTHORAX [None]
